FAERS Safety Report 8256656-9 (Version None)
Quarter: 2012Q2

REPORT INFORMATION
  Report Type: 
  Country: None (occurrence: None)
  Receive Date: 20120402
  Receipt Date: 20120402
  Transmission Date: 20120825
  Serious: Yes (Other)
  Sender: FDA-Public Use
  Company Number: None

PATIENT
  Age: 67 Year
  Sex: Female
  Weight: 91 kg

DRUGS (10)
  1. METOPROLOL TARTRATE [Concomitant]
  2. KEPPRA [Concomitant]
  3. HYDROXYZINE [Concomitant]
  4. HYDROCHLOROTHIAZIDE [Concomitant]
  5. SYNTHROID [Concomitant]
  6. AMITRIPTYLINE HCL [Concomitant]
  7. AVELOX [Suspect]
     Indication: CHRONIC OBSTRUCTIVE PULMONARY DISEASE
     Dosage: 400MG DAILY ORAL
     Route: 048
     Dates: start: 20120312, end: 20120317
  8. AVELOX [Suspect]
     Indication: CONDITION AGGRAVATED
     Dosage: 400MG DAILY ORAL
     Route: 048
     Dates: start: 20120312, end: 20120317
  9. FUROSEMIDE [Concomitant]
  10. WARFARIN SODIUM [Concomitant]

REACTIONS (1)
  - ERYTHEMA [None]
